FAERS Safety Report 6241610-9 (Version None)
Quarter: 2009Q2

REPORT INFORMATION
  Report Type: 
  Country: None (occurrence: None)
  Receive Date: 20090623
  Receipt Date: 20070109
  Transmission Date: 20091009
  Serious: Yes (Hospitalization)
  Sender: FDA-Public Use
  Company Number: DE-ROCHE-478354

PATIENT
  Sex: Male
  Weight: 88 kg

DRUGS (40)
  1. DACLIZUMAB [Suspect]
     Dosage: BASELINE VISIT
     Route: 042
     Dates: start: 20031007, end: 20031007
  2. DACLIZUMAB [Suspect]
     Dosage: WEEK 2, 4, 6 AND 8 VISIT
     Route: 042
     Dates: start: 20031021
  3. MYCOPHENOLATE MOFETIL [Suspect]
     Route: 048
     Dates: start: 20031007
  4. MYCOPHENOLATE MOFETIL [Suspect]
     Route: 048
     Dates: start: 20040102
  5. MYCOPHENOLATE MOFETIL [Suspect]
     Route: 048
     Dates: start: 20040407, end: 20050517
  6. MYCOPHENOLATE MOFETIL [Suspect]
     Route: 048
     Dates: start: 20050518, end: 20050620
  7. TACROLIMUS [Suspect]
     Route: 048
     Dates: start: 20040303, end: 20041020
  8. TACROLIMUS [Suspect]
     Route: 048
     Dates: start: 20031007, end: 20040301
  9. TACROLIMUS [Suspect]
     Route: 048
     Dates: start: 20041021
  10. PREDNISOLONE [Suspect]
     Route: 048
     Dates: start: 20031007
  11. PREDNISOLONE [Suspect]
     Route: 048
     Dates: start: 20031013
  12. PREDNISOLONE [Suspect]
     Route: 048
     Dates: start: 20040102
  13. PREDNISOLONE [Suspect]
     Route: 048
     Dates: start: 20050224, end: 20050805
  14. PREDNISOLONE [Suspect]
     Route: 042
     Dates: start: 20031007, end: 20031012
  15. DILTIAZAM [Concomitant]
     Route: 048
     Dates: start: 20031007
  16. BISOPROLOL [Concomitant]
     Route: 048
     Dates: start: 20031007
  17. ALLOPURINOL [Concomitant]
     Dates: start: 20050316
  18. UNAT [Concomitant]
     Dates: start: 20050316
  19. ALDACTONE [Concomitant]
     Dates: start: 20050316
  20. RAMIPRIL [Concomitant]
     Route: 048
     Dates: start: 20031021
  21. ACTRAPID [Concomitant]
     Dates: start: 20050316
  22. PROTAPHANE [Concomitant]
     Dates: start: 20050316
  23. CALCIUMCARBONAT [Concomitant]
     Route: 048
     Dates: start: 20031024
  24. CANDESARTAN [Concomitant]
     Route: 048
     Dates: start: 20031027
  25. COTRIM [Concomitant]
     Route: 048
     Dates: start: 20031017
  26. ENOXAPARIN SODIUM [Concomitant]
     Route: 023
     Dates: start: 20031007
  27. FLUCONAZOLE [Concomitant]
     Route: 048
     Dates: start: 20031106
  28. K CL TAB [Concomitant]
     Route: 048
     Dates: start: 20031030
  29. KALIUMCITRAT [Concomitant]
     Route: 048
     Dates: start: 20031019
  30. KALIUM PHOSPHAT [Concomitant]
     Dosage: FORM: DRAG
     Route: 048
     Dates: start: 20031007
  31. MAGNESIUMHYDROGENPHOSPHAT [Concomitant]
     Dosage: DRUG: MAGNESIUMASPARTATHYDROCHLORID
     Route: 048
     Dates: start: 20031021
  32. MINOXIDIL [Concomitant]
     Route: 048
     Dates: start: 20031007, end: 20031021
  33. MINOXIDIL [Concomitant]
     Route: 048
     Dates: start: 20031024
  34. MINOXIDIL [Concomitant]
     Route: 048
     Dates: start: 20031022, end: 20031023
  35. NATRIUM HYDROGENCARBONATE [Concomitant]
     Route: 048
     Dates: start: 20031018
  36. PANTOPRAZOL [Concomitant]
     Route: 048
     Dates: start: 20031007
  37. THIAMAZOL [Concomitant]
     Route: 048
     Dates: start: 20031023
  38. TORSEMIDE [Concomitant]
     Route: 048
     Dates: start: 20031027
  39. URAPIDIL [Concomitant]
     Route: 048
     Dates: start: 20031007
  40. XIPAMID [Concomitant]
     Route: 048
     Dates: start: 20031019

REACTIONS (1)
  - LEIOMYOSARCOMA [None]
